FAERS Safety Report 17004228 (Version 2)
Quarter: 2019Q4

REPORT INFORMATION
  Report Type: Report from Study
  Country: None (occurrence: CH)
  Receive Date: 20191107
  Receipt Date: 20191214
  Transmission Date: 20200122
  Serious: Yes (Hospitalization, Other)
  Sender: FDA-Public Use
  Company Number: CH-ABBVIE-19K-151-2992846-00

PATIENT
  Sex: Male

DRUGS (3)
  1. DUODOPA [Suspect]
     Active Substance: CARBIDOPA\LEVODOPA
     Indication: PARKINSON^S DISEASE
     Route: 050
     Dates: start: 20170320, end: 20180206
  2. DUODOPA [Suspect]
     Active Substance: CARBIDOPA\LEVODOPA
     Dosage: 6.2 ML, CRD: 3.4 ML/H, CRN: 0 ML/H, ED: 1.5 ML,16 H THERAPY
     Route: 050
     Dates: start: 20190225
  3. DUODOPA [Suspect]
     Active Substance: CARBIDOPA\LEVODOPA
     Dosage: 8 ML, CRD: 5.1 ML/H, CRN: 0 ML/H, ED: 1.5 ML, 16 H THERAPY
     Route: 050
     Dates: start: 20180206, end: 20190225

REACTIONS (4)
  - Intervertebral disc protrusion [Not Recovered/Not Resolved]
  - Haemorrhoids [Unknown]
  - Paraplegia [Not Recovered/Not Resolved]
  - Device issue [Recovered/Resolved]

NARRATIVE: CASE EVENT DATE: 2019
